FAERS Safety Report 5032761-5 (Version None)
Quarter: 2006Q2

REPORT INFORMATION
  Report Type: 
  Country: None (occurrence: None)
  Receive Date: 20060622
  Receipt Date: 20060616
  Transmission Date: 20061013
  Serious: Yes (Hospitalization)
  Sender: FDA-Public Use
  Company Number: FR-MERCK-0606FRA00051

PATIENT
  Age: 88 Year
  Sex: Female
  Weight: 50 kg

DRUGS (10)
  1. FOSAMAX [Suspect]
     Indication: OSTEOPOROSIS
     Route: 048
  2. TRIMETAZIDINE HYDROCHLORIDE [Concomitant]
     Indication: DIZZINESS
     Route: 048
  3. BROMAZEPAM [Concomitant]
     Indication: ANXIETY
     Route: 048
  4. IRBESARTAN [Concomitant]
     Indication: HYPERTENSION
     Route: 048
  5. CLOPIDOGREL BISULFATE [Concomitant]
     Indication: ANGINA PECTORIS
     Route: 048
  6. NICORANDIL [Concomitant]
     Indication: ANGINA PECTORIS
     Route: 048
  7. CALCIUM (UNSPECIFIED) [Concomitant]
     Indication: OSTEOPOROSIS
     Route: 048
  8. VITAMIN D (UNSPECIFIED) [Concomitant]
     Indication: OSTEOPOROSIS
     Route: 048
  9. ZOPICLONE [Concomitant]
     Indication: INSOMNIA
     Route: 048
  10. ACETAMINOPHEN [Concomitant]
     Indication: PAIN
     Route: 048

REACTIONS (1)
  - HYPOGLYCAEMIA [None]
